FAERS Safety Report 7760517-9 (Version None)
Quarter: 2011Q3

REPORT INFORMATION
  Report Type: 
  Country: None (occurrence: None)
  Receive Date: 20110919
  Receipt Date: 20110801
  Transmission Date: 20111222
  Serious: No
  Sender: FDA-Public Use
  Company Number: US-ALLERGAN-1102994US

PATIENT
  Sex: Female

DRUGS (2)
  1. LATISSE [Suspect]
     Indication: GROWTH OF EYELASHES
     Dosage: 1 GTT, QHS
     Route: 047
     Dates: start: 20110201
  2. LATISSE [Suspect]
     Dosage: UNK
     Dates: end: 20110605

REACTIONS (11)
  - HEADACHE [None]
  - NASAL CONGESTION [None]
  - VISUAL ACUITY REDUCED [None]
  - UPPER RESPIRATORY TRACT IRRITATION [None]
  - SKIN IRRITATION [None]
  - EYE DISCHARGE [None]
  - SNEEZING [None]
  - COUGH [None]
  - OROPHARYNGEAL PAIN [None]
  - THERAPEUTIC RESPONSE DECREASED [None]
  - EAR PRURITUS [None]
